FAERS Safety Report 7589451 (Version 2)
Quarter: 2013Q3

REPORT INFORMATION
  Report Type: Report from Study
  Country: DE (occurrence: DE)
  Receive Date: 20100916
  Receipt Date: 20130712
  Transmission Date: 20140515
  Serious: Yes (Hospitalization, Other)
  Sender: FDA-Public Use
  Company Number: DE-ROCHE-726805

PATIENT
  Age: 41 Year
  Sex: Female
  Weight: 68 kg

DRUGS (4)
  1. PEG-INTERFERON ALFA 2A [Suspect]
     Indication: CHRONIC HEPATITIS C
     Route: 058
  2. RIBAVIRIN [Suspect]
     Indication: CHRONIC HEPATITIS C
     Route: 065
  3. PANTOPRAZOLE [Concomitant]
     Route: 065
  4. NOVALGIN [Concomitant]
     Route: 065

REACTIONS (2)
  - Abdominal discomfort [Recovered/Resolved]
  - Infectious colitis [Unknown]
